FAERS Safety Report 9371104 (Version 1)
Quarter: 2013Q2

REPORT INFORMATION
  Report Type: Spontaneous
  Country: US (occurrence: None)
  Receive Date: 20130626
  Receipt Date: 20130626
  Transmission Date: 20140414
  Serious: Yes (Hospitalization)
  Sender: FDA-Public Use
  Company Number: None

PATIENT
  Age: 57 Year
  Sex: Male
  Weight: 69 kg

DRUGS (3)
  1. BICALUTAMIDE [Suspect]
  2. LEUPROLIDE ACETATE [Suspect]
  3. ALKALINE WATER [Concomitant]

REACTIONS (1)
  - Alanine aminotransferase increased [None]
